FAERS Safety Report 8486375-5 (Version None)
Quarter: 2012Q3

REPORT INFORMATION
  Report Type: 
  Country: None (occurrence: None)
  Receive Date: 20120703
  Receipt Date: 20120628
  Transmission Date: 20120928
  Serious: Yes (Hospitalization)
  Sender: FDA-Public Use
  Company Number: JP-GLAXOSMITHKLINE-B0809924A

PATIENT
  Sex: Male

DRUGS (3)
  1. TAMSULOSIN HCL [Concomitant]
     Indication: BENIGN PROSTATIC HYPERPLASIA
     Route: 048
  2. RABEPRAZOLE SODIUM [Concomitant]
     Indication: DUODENAL ULCER
     Route: 048
  3. ZANTAC [Suspect]
     Indication: DUODENAL ULCER
     Dosage: 150MG PER DAY
     Route: 048

REACTIONS (2)
  - RENAL IMPAIRMENT [None]
  - NASOPHARYNGITIS [None]
